FAERS Safety Report 14068471 (Version 3)
Quarter: 2018Q3

REPORT INFORMATION
  Report Type: Spontaneous
  Country: US (occurrence: US)
  Receive Date: 20171010
  Receipt Date: 20180801
  Transmission Date: 20181010
  Serious: No
  Sender: FDA-Public Use
  Company Number: US-PFIZER INC-2017427394

PATIENT
  Age: 51 Year
  Sex: Female

DRUGS (2)
  1. HERCEPTIN [Concomitant]
     Active Substance: TRASTUZUMAB
     Indication: CHEMOTHERAPY
     Dosage: UNK, CYCLIC (EVERY 3 WEEKS)
  2. DOCETAXEL. [Suspect]
     Active Substance: DOCETAXEL
     Indication: BREAST CANCER
     Dosage: UNK, CYCLIC (EVERY 3 WEEKS, 6 CYCLES)
     Dates: start: 20121203, end: 20131209

REACTIONS (5)
  - Hair texture abnormal [Recovering/Resolving]
  - Hair colour changes [Recovering/Resolving]
  - Alopecia [Recovering/Resolving]
  - Hair disorder [Recovering/Resolving]
  - Madarosis [Recovering/Resolving]

NARRATIVE: CASE EVENT DATE: 2012
